FAERS Safety Report 23236883 (Version 2)
Quarter: 2024Q1

REPORT INFORMATION
  Report Type: Report from Study
  Country: US (occurrence: US)
  Receive Date: 20231128
  Receipt Date: 20240220
  Transmission Date: 20240410
  Serious: No
  Sender: FDA-Public Use
  Company Number: US-BRISTOL-MYERS SQUIBB COMPANY-2023-171667

PATIENT
  Age: 25 Year
  Sex: Male
  Weight: 93.8 kg

DRUGS (3)
  1. SPRYCEL [Suspect]
     Active Substance: DASATINIB
     Indication: Chronic myeloid leukaemia
     Route: 048
     Dates: start: 202212
  2. SPRYCEL [Suspect]
     Active Substance: DASATINIB
     Route: 048
     Dates: start: 202402
  3. ROSADAN [Concomitant]
     Active Substance: METRONIDAZOLE
     Indication: Dermatitis acneiform
     Dosage: 1 APPLICATION, TOPICAL,2 TIMES DAILY

REACTIONS (13)
  - Myalgia [Unknown]
  - Headache [Unknown]
  - Musculoskeletal pain [Unknown]
  - Pain in extremity [Unknown]
  - Joint effusion [Unknown]
  - Peripheral coldness [Unknown]
  - Chest pain [Unknown]
  - Chills [Unknown]
  - Pain [Unknown]
  - Hypertransaminasaemia [Recovered/Resolved]
  - Blood glucose decreased [Unknown]
  - Blood triglycerides increased [Unknown]
  - Blood lactic acid increased [Unknown]
